FAERS Safety Report 5520289-5 (Version None)
Quarter: 2007Q4

REPORT INFORMATION
  Report Type: 
  Country: None (occurrence: None)
  Receive Date: 20071115
  Receipt Date: 20071115
  Transmission Date: 20080405
  Serious: Yes (Other)
  Sender: FDA-Public Use
  Company Number: None

PATIENT
  Sex: Female

DRUGS (1)
  1. OXYCONTIN [Suspect]
     Indication: PAIN
     Dosage: 3 TAB PO TID ALLERGIC TO FILLERS OF 20MG 2/06
     Route: 048

REACTIONS (5)
  - GASTROINTESTINAL DISORDER [None]
  - INADEQUATE ANALGESIA [None]
  - RASH PRURITIC [None]
  - REACTION TO DRUG EXCIPIENTS [None]
  - THERAPEUTIC RESPONSE UNEXPECTED WITH DRUG SUBSTITUTION [None]
